FAERS Safety Report 10103678 (Version 2)
Quarter: 2015Q1

REPORT INFORMATION
  Report Type: Report from Study
  Country: US (occurrence: US)
  Receive Date: 20140424
  Receipt Date: 20150129
  Transmission Date: 20150720
  Serious: Yes (Hospitalization, Other)
  Sender: FDA-Public Use
  Company Number: US-ASTELLAS-2014US004029

PATIENT
  Age: 87 Year
  Sex: Female

DRUGS (2)
  1. ERLOTINIB [Suspect]
     Active Substance: ERLOTINIB
     Indication: LUNG NEOPLASM MALIGNANT
     Dosage: 150 MG, OTHER (1 WEEK ON, 1 WEEK OFF)
     Route: 048
     Dates: start: 20140324
  2. SYNTHROID [Concomitant]
     Active Substance: LEVOTHYROXINE SODIUM
     Indication: PRODUCT USED FOR UNKNOWN INDICATION
     Dosage: 75 UNIT NOT REPORTED, ONCE DAILY
     Route: 048

REACTIONS (6)
  - Off label use [Unknown]
  - Diarrhoea [Recovered/Resolved with Sequelae]
  - Dehydration [Recovering/Resolving]
  - Constipation [Recovering/Resolving]
  - Confusional state [Recovered/Resolved]
  - Weight decreased [Not Recovered/Not Resolved]

NARRATIVE: CASE EVENT DATE: 201403
